FAERS Safety Report 9433746 (Version 1)
Quarter: 2013Q3

REPORT INFORMATION
  Report Type: Spontaneous
  Country: US (occurrence: None)
  Receive Date: 20130729
  Receipt Date: 20130729
  Transmission Date: 20140515
  Serious: Yes (Hospitalization)
  Sender: FDA-Public Use
  Company Number: FK201302729

PATIENT
  Age: 26 Year
  Sex: Female

DRUGS (1)
  1. IFOSFAMIDE [Suspect]
     Indication: RHABDOMYOSARCOMA
     Dosage: CUMULATIVE DOSE OF 23.4 G/M2

REACTIONS (2)
  - Nephrogenic diabetes insipidus [None]
  - Fanconi syndrome [None]
